FAERS Safety Report 7300746-1 (Version None)
Quarter: 2011Q1

REPORT INFORMATION
  Report Type: 
  Country: None (occurrence: None)
  Receive Date: 20110218
  Receipt Date: 20100416
  Transmission Date: 20110831
  Serious: Yes (Other)
  Sender: FDA-Public Use
  Company Number: US-RANBAXY-2010US-33614

PATIENT

DRUGS (18)
  1. OXYCODONE [Concomitant]
     Indication: INCISION SITE PAIN
     Dosage: UNK, UNK
     Route: 065
  2. DOCUSATE SODIUM [Concomitant]
     Indication: CONSTIPATION
     Dosage: UNK, UNK
     Route: 065
  3. FUROSEMIDE [Concomitant]
     Indication: OEDEMA
     Dosage: UNK, UNK
     Route: 065
  4. SENNA-DOCUSATE [Concomitant]
     Indication: CONSTIPATION
     Dosage: UNK, UNK
     Route: 065
  5. WARFARIN [Concomitant]
     Indication: ATRIAL FIBRILLATION
     Dosage: UNK, UNK
     Route: 065
  6. AMIODARONE [Concomitant]
     Indication: ATRIAL FIBRILLATION
     Dosage: UNK, UNK
     Route: 065
  7. MYCOPHENOLATE MOFETIL [Concomitant]
     Indication: TRANSPLANT REJECTION
     Dosage: UNK, UNK
     Route: 065
  8. NYSTATIN [Concomitant]
     Indication: ANTIFUNGAL PROPHYLAXIS
     Dosage: UNK, UNK
     Route: 065
  9. MARIBAVIR PLACEBO [Suspect]
     Indication: ANTIVIRAL PROPHYLAXIS
     Dosage: 100 MG, BID
     Route: 048
     Dates: start: 20080829, end: 20081205
  10. ZOLPIDEM [Concomitant]
     Indication: INSOMNIA
     Dosage: UNK, UNK
     Route: 065
  11. GANCICLOVIR [Suspect]
     Indication: ANTIVIRAL PROPHYLAXIS
     Dosage: 1000 MG, TID
     Route: 048
     Dates: start: 20080829, end: 20081205
  12. PREDNISONE [Concomitant]
     Indication: PROPHYLAXIS
     Dosage: UNK, UNK
     Route: 065
  13. BACTRIM [Concomitant]
     Indication: ANTIBIOTIC PROPHYLAXIS
     Dosage: UNK, UNK
     Route: 065
  14. CALCIUM CARBONATE [Concomitant]
     Indication: ROUTINE HEALTH MAINTENANCE
     Dosage: UNK, UNK
     Route: 065
  15. OMEPRAZOLE [Concomitant]
     Indication: GASTROOESOPHAGEAL REFLUX PROPHYLAXIS
     Dosage: UNK, UNK
     Route: 065
  16. METOPROLOL [Concomitant]
     Indication: ATRIAL FIBRILLATION
     Dosage: UNK, UNK
     Route: 065
  17. ACYCLOVIR (PLACEBO) [Suspect]
     Indication: ANTIVIRAL PROPHYLAXIS
     Dosage: 400 MG, TID
     Route: 048
     Dates: start: 20080829, end: 20081205
  18. CYCLOSPORINE [Concomitant]
     Indication: PROPHYLAXIS AGAINST TRANSPLANT REJECTION
     Dosage: UNK, UNK
     Route: 065

REACTIONS (2)
  - CYTOMEGALOVIRUS INFECTION [None]
  - DRUG INEFFECTIVE [None]
